FAERS Safety Report 7364306-9 (Version None)
Quarter: 2011Q1

REPORT INFORMATION
  Report Type: 
  Country: None (occurrence: None)
  Receive Date: 20110321
  Receipt Date: 20110314
  Transmission Date: 20110831
  Serious: Yes (Other)
  Sender: FDA-Public Use
  Company Number: B0706757A

PATIENT
  Age: 55 Year
  Sex: Male

DRUGS (1)
  1. ALLERMIST [Suspect]
     Route: 045

REACTIONS (4)
  - VISION BLURRED [None]
  - ASPHYXIA [None]
  - DYSPNOEA [None]
  - PALPITATIONS [None]
